FAERS Safety Report 5611060-4 (Version None)
Quarter: 2008Q1

REPORT INFORMATION
  Report Type: 
  Country: None (occurrence: None)
  Receive Date: 20080201
  Receipt Date: 20080122
  Transmission Date: 20080703
  Serious: Yes (Hospitalization)
  Sender: FDA-Public Use
  Company Number: CH-ASTRAZENECA-2008PK00215

PATIENT
  Age: 31 Year
  Sex: Female

DRUGS (16)
  1. SEROQUEL [Suspect]
     Route: 048
     Dates: start: 20071121, end: 20071121
  2. SEROQUEL [Suspect]
     Route: 048
     Dates: start: 20071122, end: 20071122
  3. SEROQUEL [Suspect]
     Route: 048
     Dates: start: 20071123, end: 20071123
  4. SEROQUEL [Suspect]
     Route: 048
     Dates: start: 20071124, end: 20071124
  5. SEROQUEL [Suspect]
     Route: 048
     Dates: start: 20071125, end: 20071126
  6. SEROQUEL [Suspect]
     Route: 048
     Dates: start: 20071127, end: 20071128
  7. SEROQUEL [Suspect]
     Route: 048
     Dates: start: 20071129
  8. NOZINAN [Suspect]
     Route: 048
     Dates: start: 20071121, end: 20071122
  9. NOZINAN [Suspect]
     Route: 048
     Dates: start: 20071123, end: 20071123
  10. NOZINAN [Suspect]
     Route: 048
     Dates: start: 20071124, end: 20071124
  11. NOZINAN [Suspect]
     Route: 048
     Dates: start: 20071125, end: 20071126
  12. NOZINAN [Suspect]
     Route: 048
     Dates: start: 20071127, end: 20071127
  13. ECODOLOR [Suspect]
     Route: 048
     Dates: start: 20071124, end: 20071124
  14. LAMICTAL [Concomitant]
     Route: 048
     Dates: start: 20071121
  15. EFFEXOR [Concomitant]
     Route: 048
     Dates: start: 20071121
  16. NEBILET [Concomitant]
     Route: 048
     Dates: start: 20071121

REACTIONS (2)
  - GRAND MAL CONVULSION [None]
  - SUICIDE ATTEMPT [None]
